FAERS Safety Report 8122672-0 (Version None)
Quarter: 2012Q1

REPORT INFORMATION
  Report Type: 
  Country: None (occurrence: None)
  Receive Date: 20120208
  Receipt Date: 20120130
  Transmission Date: 20120608
  Serious: Yes (Hospitalization)
  Sender: FDA-Public Use
  Company Number: 2005BI016179

PATIENT
  Age: 53 Year
  Sex: Female

DRUGS (8)
  1. AVONEX [Suspect]
     Indication: MULTIPLE SCLEROSIS
     Route: 030
     Dates: start: 19990101, end: 19990101
  2. AVONEX [Suspect]
     Route: 030
  3. MIRTAZAPINE [Concomitant]
     Indication: HYPERTENSION
  4. AVONEX [Suspect]
     Route: 030
     Dates: start: 19991201
  5. CYMBALTA [Concomitant]
     Indication: DEPRESSION
  6. LISINOPRIL [Concomitant]
     Indication: HYPERTENSION
  7. METFORMIN HCL [Concomitant]
     Indication: DIABETES MELLITUS
  8. DIURETICS [Concomitant]
     Indication: PRODUCT USED FOR UNKNOWN INDICATION

REACTIONS (11)
  - BALANCE DISORDER [None]
  - WEIGHT DECREASED [None]
  - FIBROMYALGIA [None]
  - HEADACHE [None]
  - FALL [None]
  - ABDOMINAL DISTENSION [None]
  - INNER EAR DISORDER [None]
  - DIZZINESS [None]
  - CONFUSIONAL STATE [None]
  - BLOOD SODIUM DECREASED [None]
  - HYPONATRAEMIA [None]
